FAERS Safety Report 23462162 (Version 2)
Quarter: 2024Q1

REPORT INFORMATION
  Report Type: Spontaneous
  Country: FR (occurrence: FR)
  Receive Date: 20240131
  Receipt Date: 20240202
  Transmission Date: 20240410
  Serious: Yes (Death, Hospitalization, Other)
  Sender: FDA-Public Use
  Company Number: None

PATIENT
  Age: 68 Year
  Sex: Male

DRUGS (20)
  1. VALSARTAN [Suspect]
     Active Substance: VALSARTAN
     Indication: Hypertension
     Dosage: 80 MG, QD
     Route: 048
     Dates: start: 20231004
  2. ESOMEPRAZOLE [Suspect]
     Active Substance: ESOMEPRAZOLE
     Indication: Prophylaxis
     Dosage: 80 MG, QD
     Route: 048
  3. ESOMEPRAZOLE [Suspect]
     Active Substance: ESOMEPRAZOLE
     Dosage: 40 MG, QD
     Route: 048
  4. DOCETAXEL [Suspect]
     Active Substance: DOCETAXEL\DOCETAXEL ANHYDROUS
     Indication: Prostate cancer
     Dosage: 60 MG/M2, Q3W
     Route: 042
     Dates: start: 20230923, end: 20231204
  5. DOCETAXEL [Suspect]
     Active Substance: DOCETAXEL\DOCETAXEL ANHYDROUS
     Dosage: 60 MG/M2, Q3W
     Route: 042
     Dates: start: 20231113, end: 20231113
  6. DOCETAXEL [Suspect]
     Active Substance: DOCETAXEL\DOCETAXEL ANHYDROUS
     Dosage: 60 MG/M2, Q3W
     Route: 042
     Dates: start: 20231204, end: 20231204
  7. PREDNISONE [Suspect]
     Active Substance: PREDNISONE
     Indication: Prostate cancer
     Dosage: 1 DF, QD
     Route: 048
     Dates: start: 20230923
  8. PREGABALIN [Suspect]
     Active Substance: PREGABALIN
     Indication: Pain
     Dosage: 300 MG, QD
     Route: 048
     Dates: start: 20230830
  9. ZOPICLONE [Suspect]
     Active Substance: ZOPICLONE
     Indication: Insomnia
     Dosage: 7.5 MG, QD
     Route: 048
     Dates: start: 20230606
  10. EZETIMIBE [Suspect]
     Active Substance: EZETIMIBE
     Indication: Dyslipidaemia
     Dosage: 10 MG, QD
     Route: 048
  11. ERYTHROPOIETIN [Suspect]
     Active Substance: ERYTHROPOIETIN
     Indication: Product used for unknown indication
     Dosage: 1 DF, QW(20,000 IU EVERY FRIDAY FROM 22/09)
     Route: 058
  12. AMLODIPINE BESYLATE [Suspect]
     Active Substance: AMLODIPINE BESYLATE
     Indication: Product used for unknown indication
     Dosage: 5 MG, QD
     Route: 048
  13. ABIRATERONE ACETATE [Suspect]
     Active Substance: ABIRATERONE ACETATE
     Indication: Prostate cancer
     Dosage: 1 G, QD
     Route: 048
     Dates: start: 20230923
  14. COMIRNATY (TOZINAMERAN) [Suspect]
     Active Substance: TOZINAMERAN
     Indication: COVID-19 immunisation
     Dosage: 1 DF
     Route: 030
     Dates: start: 20231011, end: 20231011
  15. COMIRNATY (TOZINAMERAN) [Suspect]
     Active Substance: TOZINAMERAN
     Dosage: UNK(COMIRNATY ORIOMIBA1/R3   )
     Route: 030
     Dates: start: 20230512
  16. POLYETHYLENE GLYCOLS [Suspect]
     Active Substance: POLYETHYLENE GLYCOLS
     Dosage: UNK
  17. ONDANSETRON HYDROCHLORIDE [Suspect]
     Active Substance: ONDANSETRON HYDROCHLORIDE
     Dosage: UNK
  18. OXAZEPAM [Suspect]
     Active Substance: OXAZEPAM
     Dosage: UNK
  19. DAFALGAN [Suspect]
     Active Substance: ACETAMINOPHEN
     Dosage: UNK
  20. FIRMAGON [Suspect]
     Active Substance: DEGARELIX ACETATE
     Dosage: UNK(IN THE LEFT THIGH AND NOT ABDOMINAL SC )
     Route: 058
     Dates: start: 20231211

REACTIONS (8)
  - Acquired haemophilia [Fatal]
  - Shock haemorrhagic [Fatal]
  - Acute kidney injury [Unknown]
  - Haematoma [Unknown]
  - Acute myocardial infarction [Unknown]
  - General physical health deterioration [Unknown]
  - Inflammation [Unknown]
  - Influenza [Unknown]

NARRATIVE: CASE EVENT DATE: 20231023
